FAERS Safety Report 6664482-7 (Version None)
Quarter: 2010Q2

REPORT INFORMATION
  Report Type: 
  Country: None (occurrence: None)
  Receive Date: 20100401
  Receipt Date: 20100324
  Transmission Date: 20101027
  Serious: Yes (Hospitalization)
  Sender: FDA-Public Use
  Company Number: FR-GILEAD-2010-0028114

PATIENT
  Sex: Female

DRUGS (5)
  1. VIREAD [Suspect]
     Indication: HEPATITIS B
     Route: 048
  2. VFEND [Suspect]
     Route: 042
     Dates: start: 20100205
  3. VFEND [Suspect]
     Route: 042
  4. CANCIDAS [Concomitant]
     Route: 042
     Dates: end: 20100219
  5. METOPIRONE [Concomitant]
     Route: 048

REACTIONS (1)
  - MIXED LIVER INJURY [None]
